FAERS Safety Report 9506180 (Version 1)
Quarter: 2013Q1

REPORT INFORMATION
  Report Type: Spontaneous
  Country: US (occurrence: None)
  Receive Date: 20130304
  Receipt Date: 20130304
  Transmission Date: 20140127
  Serious: Yes (Other)
  Sender: FDA-Public Use
  Company Number: 201211063

PATIENT
  Age: 56 Year
  Sex: Male

DRUGS (3)
  1. ANTIHYPERSENSITIVES (ANTIHYPERSENSITIVES) [Concomitant]
  2. XIAFLEX [Suspect]
     Indication: DUPUYTREN^S CONTRACTURE
     Dosage: INTRALESIONAL
     Dates: start: 20121105, end: 20121105
  3. PRILOSEC [Concomitant]

REACTIONS (1)
  - Tendon rupture [None]
